FAERS Safety Report 11499758 (Version 1)
Quarter: 2015Q3

REPORT INFORMATION
  Report Type: Spontaneous
  Country: GB (occurrence: GB)
  Receive Date: 20150914
  Receipt Date: 20150914
  Transmission Date: 20151125
  Serious: Yes (Other)
  Sender: FDA-Public Use
  Company Number: GB-UCBSA-2015028974

PATIENT
  Age: 65 Year
  Sex: Female

DRUGS (1)
  1. KEPPRA [Suspect]
     Active Substance: LEVETIRACETAM
     Indication: EPILEPSY
     Dosage: 250 MG, ONCE DAILY (QD)
     Route: 048

REACTIONS (6)
  - Palpitations [Unknown]
  - Headache [Unknown]
  - Photopsia [Unknown]
  - Migraine [Unknown]
  - Ear pain [Unknown]
  - Visual impairment [Unknown]
